FAERS Safety Report 25590847 (Version 1)
Quarter: 2025Q3

REPORT INFORMATION
  Report Type: Spontaneous
  Country: US (occurrence: US)
  Receive Date: 20250722
  Receipt Date: 20250722
  Transmission Date: 20251021
  Serious: No
  Sender: BIOMARIN
  Company Number: US-BIOMARINAP-US-2025-167404

PATIENT

DRUGS (1)
  1. PALYNZIQ [Suspect]
     Active Substance: PEGVALIASE-PQPZ
     Indication: Phenylketonuria

REACTIONS (2)
  - Arthralgia [Recovering/Resolving]
  - Rash [Recovering/Resolving]
